FAERS Safety Report 4993936-4 (Version None)
Quarter: 2006Q2

REPORT INFORMATION
  Report Type: 
  Country: None (occurrence: None)
  Receive Date: 20060505
  Receipt Date: 20060417
  Transmission Date: 20061013
  Serious: Yes (Disabling, Other)
  Sender: FDA-Public Use
  Company Number: US-GLAXOSMITHKLINE-A0601947A

PATIENT
  Age: 84 Year
  Sex: Female
  Weight: 54.5 kg

DRUGS (6)
  1. ADVAIR DISKUS 100/50 [Suspect]
     Indication: ASTHMA
     Dosage: 1PUFF TWICE PER DAY
     Route: 055
     Dates: start: 20060213, end: 20060307
  2. ALBUTEROL [Concomitant]
     Route: 055
  3. COENZYME Q10 [Concomitant]
  4. GARLIC [Concomitant]
  5. COD LIVER OIL [Concomitant]
  6. CALCIUM CARBONATE [Concomitant]

REACTIONS (6)
  - EYE PAIN [None]
  - GLAUCOMA [None]
  - MACULAR DEGENERATION [None]
  - OPTIC NERVE INJURY [None]
  - VISUAL ACUITY REDUCED [None]
  - VISUAL DISTURBANCE [None]
